FAERS Safety Report 24619876 (Version 1)
Quarter: 2024Q4

REPORT INFORMATION
  Report Type: Report from Study
  Country: US (occurrence: US)
  Receive Date: 20241114
  Receipt Date: 20241114
  Transmission Date: 20250114
  Serious: No
  Sender: SANDOZ
  Company Number: US-SANDOZ-SDZ2024US047338

PATIENT
  Age: 7 Year
  Sex: Male

DRUGS (2)
  1. OMNITROPE [Suspect]
     Active Substance: SOMATROPIN
     Indication: Hypopituitarism
     Dosage: 5 MG, QD
     Route: 030
     Dates: start: 20230829
  2. OMNITROPE [Suspect]
     Active Substance: SOMATROPIN
     Indication: Hypopituitarism
     Dosage: 5 MG, QD
     Route: 030
     Dates: start: 20230829

REACTIONS (2)
  - Drug ineffective [Unknown]
  - Device breakage [Unknown]

NARRATIVE: CASE EVENT DATE: 20240508
